FAERS Safety Report 18708161 (Version 2)
Quarter: 2021Q1

REPORT INFORMATION
  Report Type: Spontaneous
  Country: US (occurrence: US)
  Receive Date: 20210106
  Receipt Date: 20210119
  Transmission Date: 20210419
  Serious: No
  Sender: FDA-Public Use
  Company Number: US-SA-2021SA003254

PATIENT
  Age: 58 Year
  Sex: Male

DRUGS (15)
  1. DUPIXENT [Suspect]
     Active Substance: DUPILUMAB
     Indication: DERMATITIS ATOPIC
     Dosage: 600 MG, 1X
     Route: 058
     Dates: start: 20201215, end: 20201215
  2. HYDROXYCHLOROQUINE [Concomitant]
     Active Substance: HYDROXYCHLOROQUINE
  3. ROSUVASTATIN. [Concomitant]
     Active Substance: ROSUVASTATIN
  4. SUDAFED [Concomitant]
     Active Substance: PSEUDOEPHEDRINE HYDROCHLORIDE
  5. ADDERALL [Concomitant]
     Active Substance: AMPHETAMINE ASPARTATE\AMPHETAMINE SULFATE\DEXTROAMPHETAMINE SACCHARATE\DEXTROAMPHETAMINE SULFATE
  6. CELEBREX [Concomitant]
     Active Substance: CELECOXIB
  7. LISINOPRIL. [Concomitant]
     Active Substance: LISINOPRIL
  8. CARISOPRODOL. [Concomitant]
     Active Substance: CARISOPRODOL
  9. TACROLIMUS. [Concomitant]
     Active Substance: TACROLIMUS
  10. DUPIXENT [Suspect]
     Active Substance: DUPILUMAB
     Indication: PSORIATIC ARTHROPATHY
     Dosage: 300 MG, QOW
     Route: 058
  11. PREGABALIN. [Concomitant]
     Active Substance: PREGABALIN
  12. ZOLPIDEM [Concomitant]
     Active Substance: ZOLPIDEM TARTRATE
  13. VALIUM [Concomitant]
     Active Substance: DIAZEPAM
  14. AZELASTIN [AZELASTINE] [Concomitant]
  15. AMLODIPINE [Concomitant]
     Active Substance: AMLODIPINE BESYLATE

REACTIONS (3)
  - Injection site mass [Recovered/Resolved]
  - Injection site rash [Recovered/Resolved]
  - Product use in unapproved indication [Unknown]
